FAERS Safety Report 15101175 (Version 1)
Quarter: 2018Q2

REPORT INFORMATION
  Report Type: Spontaneous
  Country: US (occurrence: US)
  Receive Date: 20180611
  Receipt Date: 20180611
  Transmission Date: 20180711
  Serious: No
  Sender: FDA-Public Use
  Company Number: None

PATIENT
  Sex: Male

DRUGS (1)
  1. STIVARGA [Suspect]
     Active Substance: REGORAFENIB
     Indication: RECTAL CANCER
     Dosage: 40MG ONCE DAILY FOR 21 DAYS ON THE 7 DAYS OF BY MOUTH
     Route: 048
     Dates: start: 20180524

REACTIONS (5)
  - Dizziness [None]
  - Decreased appetite [None]
  - Somnolence [None]
  - Chest pain [None]
  - Cough [None]
